FAERS Safety Report 7039350-1 (Version None)
Quarter: 2010Q3

REPORT INFORMATION
  Report Type: 
  Country: None (occurrence: None)
  Receive Date: 20100913
  Receipt Date: 20100831
  Transmission Date: 20110219
  Serious: Yes (Hospitalization)
  Sender: FDA-Public Use
  Company Number: 2010026118

PATIENT
  Age: 57 Year
  Sex: Male

DRUGS (8)
  1. SANDOGLOBULIN [Suspect]
     Indication: ENCEPHALITIS
     Dosage: INTRAVENOUS
     Route: 042
     Dates: start: 20100723, end: 20100727
  2. LANTUS [Concomitant]
  3. NOVOLOG [Concomitant]
  4. ALISKIREN (ALISKIREN) [Concomitant]
  5. AMLODIPINE BESYLATE [Concomitant]
  6. EUPRESSYL (URAPIDIL) [Concomitant]
  7. SYMBICORT [Concomitant]
  8. ACETAMINOPHEN [Concomitant]

REACTIONS (2)
  - INFECTION [None]
  - MYALGIA [None]
